FAERS Safety Report 7653609-6 (Version None)
Quarter: 2011Q3

REPORT INFORMATION
  Report Type: 
  Country: None (occurrence: None)
  Receive Date: 20110728
  Receipt Date: 20101104
  Transmission Date: 20111222
  Serious: Yes (Disabling, Other)
  Sender: FDA-Public Use
  Company Number: 2010SP058594

PATIENT
  Age: 66 Year
  Sex: Female
  Weight: 75.7507 kg

DRUGS (15)
  1. INTRON A [Suspect]
     Indication: MALIGNANT MELANOMA
     Dosage: 18 MIU;TIW;SC
     Route: 058
     Dates: start: 20100907, end: 20101020
  2. TRIAMTERENE AND HYDROCHLOROTHIAZIDE [Concomitant]
  3. PENICILLIN V POTASSIUM [Concomitant]
  4. FEXOFENADINE HCL [Concomitant]
  5. CALCIUM/VITAMIN D [Concomitant]
  6. HYDROMORPHONE HCL [Concomitant]
  7. METFORMIN HCL [Concomitant]
  8. INTRON A [Suspect]
     Indication: MALIGNANT MELANOMA
     Dosage: 37 MIU;IV
     Route: 042
     Dates: start: 20100810, end: 20100903
  9. COMPAZINE [Concomitant]
  10. ONGLYZA [Concomitant]
  11. SILVADENE [Concomitant]
  12. VENLAFAXINE [Concomitant]
  13. GLIPIZIDE [Concomitant]
  14. ASCORBIC ACID [Concomitant]
  15. AMOXICILLIN [Concomitant]

REACTIONS (1)
  - STOMATITIS [None]
